FAERS Safety Report 24318563 (Version 1)
Quarter: 2024Q3

REPORT INFORMATION
  Report Type: Report from Study
  Country: US (occurrence: US)
  Receive Date: 20240913
  Receipt Date: 20240913
  Transmission Date: 20241017
  Serious: Yes (Hospitalization)
  Sender: TAIHO ONCOLOGY INC
  Company Number: US-TAIHOP-2024-008692

PATIENT
  Age: 70 Year
  Sex: Male

DRUGS (1)
  1. LONSURF [Suspect]
     Active Substance: TIPIRACIL HYDROCHLORIDE\TRIFLURIDINE
     Indication: Product used for unknown indication
     Dosage: DOSE, FREQUENCY AND CYCLE UNKNOWN
     Route: 048

REACTIONS (2)
  - Abdominal pain [Unknown]
  - Oropharyngeal pain [Unknown]
